FAERS Safety Report 25389634 (Version 1)
Quarter: 2025Q2

REPORT INFORMATION
  Report Type: Spontaneous
  Country: US (occurrence: None)
  Receive Date: 20250602
  Receipt Date: 20250602
  Transmission Date: 20250716
  Serious: Yes (Other)
  Sender: FDA-CTU
  Company Number: None

PATIENT
  Age: 9 Year
  Sex: Female

DRUGS (1)
  1. DAYTRANA [Suspect]
     Active Substance: METHYLPHENIDATE
     Indication: Attention deficit hyperactivity disorder
     Dates: start: 20250101

REACTIONS (6)
  - Blindness transient [None]
  - Blindness unilateral [None]
  - Application site reaction [None]
  - Application site pruritus [None]
  - Application site erythema [None]
  - Colour blindness [None]

NARRATIVE: CASE EVENT DATE: 20250513
